FAERS Safety Report 7254043-3 (Version None)
Quarter: 2011Q1

REPORT INFORMATION
  Report Type: 
  Country: None (occurrence: None)
  Receive Date: 20110129
  Receipt Date: 20100318
  Transmission Date: 20110831
  Serious: No
  Sender: FDA-Public Use
  Company Number: US-ABBOTT-10P-163-0633597-00

PATIENT
  Sex: Male
  Weight: 146.64 kg

DRUGS (6)
  1. UNKNOWN MEDICATION [Concomitant]
     Indication: ANTIINFLAMMATORY THERAPY
  2. METHOTREXATE [Suspect]
     Indication: RHEUMATOID ARTHRITIS
     Route: 048
  3. METHOTREXATE [Suspect]
     Route: 048
  4. FOLIC ACID [Concomitant]
     Indication: PRODUCT USED FOR UNKNOWN INDICATION
     Dates: start: 20091201
  5. HUMIRA [Suspect]
     Indication: RHEUMATOID ARTHRITIS
     Route: 058
     Dates: start: 20060101, end: 20090101
  6. HUMIRA [Suspect]
     Route: 058
     Dates: start: 20100101

REACTIONS (1)
  - MOUTH ULCERATION [None]
